FAERS Safety Report 21199171 (Version 1)
Quarter: 2022Q3

REPORT INFORMATION
  Report Type: Spontaneous
  Country: DK (occurrence: DK)
  Receive Date: 20220811
  Receipt Date: 20220811
  Transmission Date: 20221026
  Serious: Yes (Hospitalization)
  Sender: FDA-Public Use
  Company Number: None

PATIENT
  Age: 86 Year
  Sex: Female

DRUGS (3)
  1. IBUPROFEN [Interacting]
     Active Substance: IBUPROFEN
     Indication: Back pain
     Dosage: FORM STRENGTH: 600 MG , UNIT DOSE : 1800 MG , FREQUENCY TIME :1 DAY   , DURATION : 12 DAYS
     Dates: start: 20220629, end: 20220711
  2. BENDROFLUMETHIAZIDE\POTASSIUM CHLORIDE [Interacting]
     Active Substance: BENDROFLUMETHIAZIDE\POTASSIUM CHLORIDE
     Indication: Hypertension
     Dosage: 1 DOSAGE FORMS DAILY; DOSAGE: 1 TABLET DAILY, STRENGTH: 2.5 + 573 MG , THERAPY END DATE : NASK
     Dates: start: 20220107
  3. ENALAPRIL [Interacting]
     Active Substance: ENALAPRIL
     Indication: Hypertension
     Dosage: FORM STRENGTH: 10 MG ,TABLET (UNCOATED) , UNIT DOSE : 10 MG , FREQUENCY TIME : 1 DAY , THERAPY END D
     Route: 048
     Dates: start: 20220104

REACTIONS (3)
  - Acute kidney injury [Recovered/Resolved]
  - Confusional state [Unknown]
  - Drug interaction [Unknown]

NARRATIVE: CASE EVENT DATE: 20220701
